FAERS Safety Report 24680354 (Version 1)
Quarter: 2024Q4

REPORT INFORMATION
  Report Type: Spontaneous
  Country: CN (occurrence: CN)
  Receive Date: 20241129
  Receipt Date: 20241129
  Transmission Date: 20250115
  Serious: Yes (Other)
  Sender: BAXTER
  Company Number: None

PATIENT
  Age: 69 Year
  Sex: Female
  Weight: 47 kg

DRUGS (2)
  1. MANNITOL [Suspect]
     Active Substance: MANNITOL
     Indication: Angle closure glaucoma
     Dosage: 50 MG OF INJECTION SOLUTION, ONCE DAILY (250 ML EVERY 8 HOURS )
     Route: 041
     Dates: start: 20241114, end: 20241114
  2. MANNITOL [Suspect]
     Active Substance: MANNITOL
     Indication: Intraocular pressure increased

REACTIONS (2)
  - Tremor [Recovering/Resolving]
  - Blood pressure increased [Recovering/Resolving]

NARRATIVE: CASE EVENT DATE: 20241114
